FAERS Safety Report 4555844-2 (Version None)
Quarter: 2005Q1

REPORT INFORMATION
  Report Type: 
  Country: None (occurrence: None)
  Receive Date: 20050111
  Receipt Date: 20041019
  Transmission Date: 20050727
  Serious: No
  Sender: FDA-Public Use
  Company Number: 2004S1000240

PATIENT
  Age: 67 Year
  Sex: Male
  Weight: 159 kg

DRUGS (10)
  1. CUBICIN [Suspect]
     Indication: CELLULITIS STAPHYLOCOCCAL
     Dosage: 500 MG;Q24H;IV
     Route: 042
     Dates: start: 20040914, end: 20040923
  2. NORVASC [Concomitant]
  3. TOPROL-XL [Concomitant]
  4. HYTRIN [Concomitant]
  5. ZETIA [Concomitant]
  6. FUROSEMIDE [Concomitant]
  7. ECOTRIN [Concomitant]
  8. ZYRTEC [Concomitant]
  9. NASONEX [Concomitant]
  10. HEPARIN [Concomitant]

REACTIONS (2)
  - BLOOD CREATINE PHOSPHOKINASE INCREASED [None]
  - MYALGIA [None]
